FAERS Safety Report 11971482 (Version 1)
Quarter: 2016Q1

REPORT INFORMATION
  Report Type: Spontaneous
  Country: US (occurrence: US)
  Receive Date: 20160128
  Receipt Date: 20160128
  Transmission Date: 20160526
  Serious: No
  Sender: FDA-Public Use
  Company Number: US-ASTRAZENECA-2016SE05987

PATIENT
  Age: 26146 Day
  Sex: Male
  Weight: 59.9 kg

DRUGS (10)
  1. AMBIEN [Concomitant]
     Active Substance: ZOLPIDEM TARTRATE
     Indication: SLEEP DISORDER
  2. LYNPARZA [Suspect]
     Active Substance: OLAPARIB
     Indication: PROSTATE CANCER
     Route: 048
     Dates: start: 201508
  3. PROLIA [Concomitant]
     Active Substance: DENOSUMAB
     Indication: OSTEOPENIA
     Dosage: EVERY SIX MONTHS
     Route: 030
  4. LISINOPRIL. [Suspect]
     Active Substance: LISINOPRIL
     Indication: BLOOD PRESSURE ABNORMAL
     Route: 048
     Dates: start: 2015
  5. ALTACE [Concomitant]
     Active Substance: RAMIPRIL
  6. RHINOCORT [Concomitant]
     Active Substance: BUDESONIDE
     Dosage: DAILY
     Route: 045
  7. LIPITOR [Concomitant]
     Active Substance: ATORVASTATIN CALCIUM
     Indication: BLOOD CHOLESTEROL ABNORMAL
  8. VITAMINS NOS [Concomitant]
     Active Substance: VITAMINS
  9. ASPIRIN. [Concomitant]
     Active Substance: ASPIRIN
     Indication: CARDIAC DISORDER
  10. LUPRON [Concomitant]
     Active Substance: LEUPROLIDE ACETATE
     Dosage: EVERY THREE MONTHS
     Route: 030

REACTIONS (5)
  - Throat irritation [Unknown]
  - Cough [Unknown]
  - Pneumonia [Recovered/Resolved]
  - Rhinorrhoea [Unknown]
  - Upper-airway cough syndrome [Unknown]

NARRATIVE: CASE EVENT DATE: 201512
